FAERS Safety Report 14188653 (Version 6)
Quarter: 2018Q2

REPORT INFORMATION
  Report Type: Spontaneous
  Country: US (occurrence: US)
  Receive Date: 20171114
  Receipt Date: 20180613
  Transmission Date: 20180711
  Serious: No
  Sender: FDA-Public Use
  Company Number: US-ACTELION-A-NJ2017-162543

PATIENT
  Age: 79 Year
  Sex: Female

DRUGS (6)
  1. OPSUMIT [Suspect]
     Active Substance: MACITENTAN
     Indication: PULMONARY ARTERIAL HYPERTENSION
     Dosage: 10 MG, QD
     Route: 048
     Dates: start: 20150825
  2. ORENITRAM [Suspect]
     Active Substance: TREPROSTINIL
     Dosage: 2 MG, TID
     Route: 048
     Dates: start: 20171103
  3. ORENITRAM [Suspect]
     Active Substance: TREPROSTINIL
     Dosage: 3.75 MG, TID
     Route: 048
     Dates: start: 20170906
  4. ORENITRAM [Suspect]
     Active Substance: TREPROSTINIL
     Dosage: 2.25 MG, TID
     Route: 048
     Dates: start: 20170814
  5. ADCIRCA [Concomitant]
     Active Substance: TADALAFIL
     Dosage: 40 MG, QD
     Dates: start: 20151103
  6. ORENITRAM [Suspect]
     Active Substance: TREPROSTINIL
     Indication: PRODUCT USED FOR UNKNOWN INDICATION
     Dosage: 3.75 MG, TID
     Route: 048
     Dates: start: 20171103

REACTIONS (9)
  - Arthralgia [Not Recovered/Not Resolved]
  - Nasopharyngitis [Not Recovered/Not Resolved]
  - Fatigue [Not Recovered/Not Resolved]
  - Infected bite [Not Recovered/Not Resolved]
  - Musculoskeletal pain [Not Recovered/Not Resolved]
  - Oxygen saturation abnormal [Not Recovered/Not Resolved]
  - Headache [Not Recovered/Not Resolved]
  - Myalgia [Not Recovered/Not Resolved]
  - Epistaxis [Unknown]

NARRATIVE: CASE EVENT DATE: 20171103
